FAERS Safety Report 21017918 (Version 1)
Quarter: 2022Q2

REPORT INFORMATION
  Report Type: Spontaneous
  Country: US (occurrence: None)
  Receive Date: 20220627
  Receipt Date: 20220627
  Transmission Date: 20220721
  Serious: No
  Sender: FDA-Public Use
  Company Number: None

PATIENT
  Age: 81 Year
  Sex: Male
  Weight: 62.6 kg

DRUGS (10)
  1. CAPECITABINE [Suspect]
     Active Substance: CAPECITABINE
     Indication: Pancreatic carcinoma
     Dosage: FREQUENCY : TWICE A DAY;?
     Route: 048
     Dates: start: 202101
  2. ELIQUIS [Concomitant]
     Active Substance: APIXABAN
  3. ZENPEP [Concomitant]
     Active Substance: PANCRELIPASE AMYLASE\PANCRELIPASE LIPASE\PANCRELIPASE PROTEASE
  4. DIGOXIN [Concomitant]
     Active Substance: DIGOXIN
  5. CARVEDILOL [Concomitant]
  6. LEVOTHYROXINE [Concomitant]
     Active Substance: LEVOTHYROXINE
  7. ALLOPURINOL [Concomitant]
  8. TORSEMIDE [Concomitant]
     Active Substance: TORSEMIDE
  9. TAMSULOSIN [Concomitant]
  10. IRON [Concomitant]
     Active Substance: IRON

REACTIONS (2)
  - Disease progression [None]
  - Metastasis [None]
